FAERS Safety Report 4824462-0 (Version None)
Quarter: 2005Q4

REPORT INFORMATION
  Report Type: 
  Country: None (occurrence: None)
  Receive Date: 20051108
  Receipt Date: 20051102
  Transmission Date: 20060501
  Serious: No
  Sender: FDA-Public Use
  Company Number: EWC041141412

PATIENT
  Sex: Female

DRUGS (3)
  1. OLANZAPINE [Suspect]
     Indication: SCHIZOAFFECTIVE DISORDER
     Dosage: 5 MG DAY
     Dates: start: 20010826
  2. ZELLER NERVEN DRAGEES [Concomitant]
  3. LORAZEPAM [Concomitant]

REACTIONS (7)
  - ANAEMIA [None]
  - DRUG EXPOSURE DURING PREGNANCY [None]
  - GALACTORRHOEA [None]
  - POSTPARTUM DISORDER [None]
  - PREGNANCY [None]
  - RESTLESSNESS [None]
  - SLEEP DISORDER [None]
